FAERS Safety Report 20771044 (Version 1)
Quarter: 2022Q2

REPORT INFORMATION
  Report Type: Spontaneous
  Country: JP (occurrence: JP)
  Receive Date: 20220429
  Receipt Date: 20220429
  Transmission Date: 20220721
  Serious: Yes (Life-Threatening, Other)
  Sender: FDA-Public Use
  Company Number: JP-MSD-1709JPN002837J

PATIENT
  Age: 23 Year
  Sex: Female
  Weight: 55.9 kg

DRUGS (17)
  1. BRIDION [Suspect]
     Active Substance: SUGAMMADEX
     Indication: Neuromuscular blockade reversal
     Dosage: 200 MG, QD
     Route: 042
     Dates: start: 20170718, end: 20170718
  2. ROCURONIUM BROMIDE [Concomitant]
     Active Substance: ROCURONIUM BROMIDE
     Indication: Neuromuscular blocking therapy
     Dosage: 40 MG, QD
     Route: 042
     Dates: start: 20170718, end: 20170718
  3. ROCURONIUM BROMIDE [Concomitant]
     Active Substance: ROCURONIUM BROMIDE
     Dosage: 10 MG, 5 TIMES PER DAY
     Route: 042
     Dates: start: 20170718, end: 20170718
  4. ULTIVA [Concomitant]
     Active Substance: REMIFENTANIL HYDROCHLORIDE
     Indication: Analgesic therapy
     Dosage: 6.1 MG, QD
     Route: 042
     Dates: start: 20170718, end: 20170718
  5. REMIFENTANIL HYDROCHLORIDE [Concomitant]
     Active Substance: REMIFENTANIL HYDROCHLORIDE
     Indication: Induction of anaesthesia
     Dosage: 0.5 MICROGRAM/KG/MIN,QD
     Route: 051
     Dates: start: 20170718, end: 20170718
  6. REMIFENTANIL HYDROCHLORIDE [Concomitant]
     Active Substance: REMIFENTANIL HYDROCHLORIDE
     Dosage: 0.3 MICROGRAM/KG/MIN,QD
     Route: 051
     Dates: start: 20170718, end: 20170718
  7. PROPOFOL [Concomitant]
     Active Substance: PROPOFOL
     Indication: Induction of anaesthesia
     Dosage: 100 MG, QD
     Route: 042
     Dates: start: 20170718, end: 20170718
  8. SEVOFLURANE [Concomitant]
     Active Substance: SEVOFLURANE
     Indication: Maintenance of anaesthesia
     Dosage: UNK
     Route: 055
     Dates: start: 20170718, end: 20170718
  9. DEXAMETHASONE SODIUM PHOSPHATE [Concomitant]
     Active Substance: DEXAMETHASONE SODIUM PHOSPHATE
     Indication: Prophylaxis
     Dosage: 6.6 MG, QD
     Dates: start: 20170718, end: 20170718
  10. FENTANYL [Concomitant]
     Active Substance: FENTANYL
     Indication: Analgesic therapy
     Dosage: 350 MICROGRAM, QD
     Route: 042
     Dates: start: 20170718, end: 20170718
  11. ACETAMINOPHEN [Concomitant]
     Active Substance: ACETAMINOPHEN
     Indication: Postoperative analgesia
     Dosage: 1000 MG, QD
     Route: 042
     Dates: start: 20170718, end: 20170718
  12. FLURBIPROFEN AXETIL [Concomitant]
     Active Substance: FLURBIPROFEN AXETIL
     Indication: Postoperative analgesia
     Dosage: 50 MG, QD
     Route: 042
     Dates: start: 20170718, end: 20170718
  13. DICLOFENAC SODIUM [Concomitant]
     Active Substance: DICLOFENAC SODIUM
     Indication: Postoperative analgesia
     Dosage: 50 MG, QD
     Route: 054
     Dates: start: 20170718, end: 20170718
  14. CALCIUM GLUCONATE\DEXTROSE\MAGNESIUM CHLORIDE\POTASSIUM CHLORIDE\SODIU [Concomitant]
     Active Substance: CALCIUM GLUCONATE\DEXTROSE\MAGNESIUM CHLORIDE\POTASSIUM CHLORIDE\SODIUM ACETATE\SODIUM CHLORIDE\TRIS
     Indication: Fluid replacement
     Dosage: 800 ML, QD
     Route: 042
     Dates: start: 20170718, end: 20170718
  15. CEFAZOLINA REIG JOFRE [Concomitant]
     Indication: Antibiotic prophylaxis
     Dosage: 2 G, QD
     Route: 042
     Dates: start: 20170718, end: 20170718
  16. ORA [EPINEPHRINE BITARTRATE;LIDOCAINE HYDROCHLORIDE] [Concomitant]
     Indication: Analgesic therapy
     Dosage: 1.8ML?20
     Route: 051
     Dates: start: 20170718, end: 20170718
  17. ANAPEINE [Concomitant]
     Active Substance: ROPIVACAINE HYDROCHLORIDE
     Indication: Analgesic therapy
     Dosage: 4 ML, QD
     Route: 051
     Dates: start: 20170718, end: 20170718

REACTIONS (1)
  - Anaphylactic shock [Recovered/Resolved]

NARRATIVE: CASE EVENT DATE: 20170718
